FAERS Safety Report 6962405-4 (Version None)
Quarter: 2010Q3

REPORT INFORMATION
  Report Type: 
  Country: None (occurrence: None)
  Receive Date: 20100902
  Receipt Date: 20100823
  Transmission Date: 20110219
  Serious: Yes (Other)
  Sender: FDA-Public Use
  Company Number: US-ELI_LILLY_AND_COMPANY-US201008006583

PATIENT
  Age: 56 Year
  Sex: Male
  Weight: 78.005 kg

DRUGS (4)
  1. CYMBALTA [Suspect]
     Dosage: UNK, UNKNOWN
  2. DILANTIN /00017402/ [Concomitant]
     Indication: CONVULSION
     Dosage: 200 MG, 2/D
     Route: 048
  3. LYRICA [Concomitant]
     Indication: PAIN IN EXTREMITY
     Dosage: 75 MG, DAILY (1/D)
     Route: 048
     Dates: start: 20100701
  4. AVALIDE [Concomitant]
     Dosage: UNK, UNKNOWN

REACTIONS (14)
  - ABASIA [None]
  - ANEURYSM [None]
  - CLAVICLE FRACTURE [None]
  - DRUG DEPENDENCE [None]
  - ELBOW DEFORMITY [None]
  - HEADACHE [None]
  - HYPERTENSION [None]
  - LOWER LIMB FRACTURE [None]
  - MYOCARDIAL INFARCTION [None]
  - NERVOUS SYSTEM DISORDER [None]
  - NEUROPATHY PERIPHERAL [None]
  - OEDEMA PERIPHERAL [None]
  - PARAESTHESIA [None]
  - SHOULDER DEFORMITY [None]
